FAERS Safety Report 7891624-8 (Version None)
Quarter: 2011Q4

REPORT INFORMATION
  Report Type: 
  Country: None (occurrence: None)
  Receive Date: 20111103
  Receipt Date: 20111025
  Transmission Date: 20120403
  Serious: Yes (Hospitalization, Other)
  Sender: FDA-Public Use
  Company Number: US-ASTRAZENECA-2011SE64466

PATIENT
  Age: 52 Year
  Sex: Female
  Weight: 86.2 kg

DRUGS (7)
  1. SEROQUEL [Suspect]
     Route: 048
     Dates: end: 20110815
  2. HUMIRA [Interacting]
     Indication: PSORIASIS
     Dosage: 40 MG/0.8 ML, 40 MG ONE IN TWO WEEKS.
     Route: 058
     Dates: start: 20101101, end: 20110401
  3. HUMIRA [Interacting]
     Dosage: 40 MG/0.8 ML, 40 MG ONE IN TWO WEEKS.
     Route: 058
     Dates: start: 20110905
  4. UNKNOWN ANTI DEPRESSANT [Interacting]
     Route: 065
     Dates: end: 20110815
  5. SIMVASTATIN [Concomitant]
     Indication: BLOOD CHOLESTEROL INCREASED
  6. AMBIEN [Interacting]
     Route: 065
  7. LEVOTHYROXINE SODIUM [Concomitant]
     Indication: HYPOTHYROIDISM

REACTIONS (8)
  - INFLUENZA [None]
  - LOSS OF CONSCIOUSNESS [None]
  - CONCUSSION [None]
  - BLOOD GLUCOSE DECREASED [None]
  - DEPRESSED LEVEL OF CONSCIOUSNESS [None]
  - FALL [None]
  - DRUG INTERACTION [None]
  - PAIN [None]
